FAERS Safety Report 8302508-5 (Version None)
Quarter: 2012Q2

REPORT INFORMATION
  Report Type: 
  Country: None (occurrence: None)
  Receive Date: 20120420
  Receipt Date: 20120417
  Transmission Date: 20120825
  Serious: Yes (Hospitalization)
  Sender: FDA-Public Use
  Company Number: TR-ABBOTT-12P-161-0927122-00

PATIENT
  Age: 60 Year
  Sex: Female

DRUGS (1)
  1. TARKA [Suspect]
     Indication: HYPERTENSION
     Dosage: DAILY, 240/4MG
     Route: 048
     Dates: end: 20120402

REACTIONS (4)
  - BRADYCARDIA [None]
  - VOMITING [None]
  - HYPOTENSION [None]
  - NAUSEA [None]
